FAERS Safety Report 24825609 (Version 2)
Quarter: 2025Q1

REPORT INFORMATION
  Report Type: Report from Study
  Country: CA (occurrence: CA)
  Receive Date: 20250109
  Receipt Date: 20250226
  Transmission Date: 20250408
  Serious: Yes (Life-Threatening, Hospitalization, Other)
  Sender: PFIZER
  Company Number: CA-PFIZER INC-202300010905

PATIENT
  Age: 76 Year
  Sex: Female

DRUGS (15)
  1. RITUXIMAB [Suspect]
     Active Substance: RITUXIMAB
     Indication: Glomerulonephritis
  2. RITUXIMAB [Suspect]
     Active Substance: RITUXIMAB
     Indication: Antineutrophil cytoplasmic antibody
     Route: 042
  3. RITUXIMAB [Suspect]
     Active Substance: RITUXIMAB
     Route: 042
  4. RITUXIMAB [Suspect]
     Active Substance: RITUXIMAB
     Route: 065
  5. RITUXIMAB [Suspect]
     Active Substance: RITUXIMAB
     Route: 042
  6. RITUXIMAB [Suspect]
     Active Substance: RITUXIMAB
     Route: 042
  7. RITUXIMAB [Suspect]
     Active Substance: RITUXIMAB
     Indication: Glomerulonephritis
     Route: 042
  8. RITUXIMAB [Suspect]
     Active Substance: RITUXIMAB
     Indication: Antineutrophil cytoplasmic antibody
  9. CYCLOPHOSPHAMIDE [Suspect]
     Active Substance: CYCLOPHOSPHAMIDE
     Route: 065
  10. ACETAMINOPHEN [Concomitant]
     Active Substance: ACETAMINOPHEN
     Route: 048
  11. ACETAMINOPHEN [Concomitant]
     Active Substance: ACETAMINOPHEN
     Route: 048
  12. DIPHENHYDRAMINE HYDROCHLORIDE [Concomitant]
     Active Substance: DIPHENHYDRAMINE HYDROCHLORIDE
     Route: 048
  13. DIPHENHYDRAMINE HYDROCHLORIDE [Concomitant]
     Active Substance: DIPHENHYDRAMINE HYDROCHLORIDE
     Route: 048
  14. METHYLPREDNISOLONE [Concomitant]
     Active Substance: METHYLPREDNISOLONE
     Route: 042
  15. METHYLPREDNISOLONE [Concomitant]
     Active Substance: METHYLPREDNISOLONE
     Route: 042

REACTIONS (11)
  - Cardiac failure [Not Recovered/Not Resolved]
  - Cardiomyopathy [Not Recovered/Not Resolved]
  - Alopecia [Not Recovered/Not Resolved]
  - Disease recurrence [Not Recovered/Not Resolved]
  - Glomerulonephritis [Not Recovered/Not Resolved]
  - Hyperkeratosis [Not Recovered/Not Resolved]
  - Hypersensitivity [Not Recovered/Not Resolved]
  - Malaise [Not Recovered/Not Resolved]
  - Onychoclasis [Not Recovered/Not Resolved]
  - Product use issue [Unknown]
  - Off label use [Unknown]
